FAERS Safety Report 13988698 (Version 2)
Quarter: 2017Q4

REPORT INFORMATION
  Report Type: Spontaneous
  Country: US (occurrence: US)
  Receive Date: 20170919
  Receipt Date: 20171002
  Transmission Date: 20180321
  Serious: Yes (Death, Hospitalization)
  Sender: FDA-Public Use
  Company Number: US-VIFOR (INTERNATIONAL) INC.-VIT-2017-09439

PATIENT
  Age: 52 Year
  Sex: Male
  Weight: 136.08 kg

DRUGS (13)
  1. ZEMPLAR [Concomitant]
     Active Substance: PARICALCITOL
  2. LABETALOL [Concomitant]
     Active Substance: LABETALOL\LABETALOL HYDROCHLORIDE
  3. FLONASE [Concomitant]
     Active Substance: FLUTICASONE PROPIONATE
  4. ATORVASTATIN [Concomitant]
     Active Substance: ATORVASTATIN
  5. LASIX [Concomitant]
     Active Substance: FUROSEMIDE
  6. PROCARDIA [Concomitant]
     Active Substance: NIFEDIPINE
  7. VELTASSA [Suspect]
     Active Substance: PATIROMER
     Indication: HYPERKALAEMIA
     Route: 048
     Dates: start: 20170609
  8. HYDRALAZINE [Concomitant]
     Active Substance: HYDRALAZINE HYDROCHLORIDE
  9. HYDROCODONE [Concomitant]
     Active Substance: HYDROCODONE
     Dosage: 7.5+325
  10. FLEXURA [Concomitant]
  11. PHOSLO [Concomitant]
     Active Substance: CALCIUM ACETATE
  12. ARANESP [Concomitant]
     Active Substance: DARBEPOETIN ALFA
  13. PLAVIX [Concomitant]
     Active Substance: CLOPIDOGREL BISULFATE

REACTIONS (2)
  - Anaemia [Unknown]
  - Cardiac arrest [Fatal]

NARRATIVE: CASE EVENT DATE: 20170801
